FAERS Safety Report 17398289 (Version 2)
Quarter: 2020Q1

REPORT INFORMATION
  Report Type: Spontaneous
  Country: TW (occurrence: TW)
  Receive Date: 20200210
  Receipt Date: 20200214
  Transmission Date: 20200409
  Serious: Yes (Death, Hospitalization)
  Sender: FDA-Public Use
  Company Number: TW-CELGENEUS-TWN-20200110206

PATIENT
  Age: 76 Year
  Sex: Male
  Weight: 81.5 kg

DRUGS (34)
  1. HYDROCORTISONE. [Concomitant]
     Active Substance: HYDROCORTISONE
     Indication: ADVERSE DRUG REACTION
     Dosage: 100 MILLIGRAM
     Route: 041
     Dates: start: 20200104
  2. AZACITIDINE. [Suspect]
     Active Substance: AZACITIDINE
     Indication: ACUTE MYELOID LEUKAEMIA
     Dosage: 75 MILLIGRAM/SQ. METER
     Route: 058
     Dates: start: 20190604, end: 20200118
  3. CHLORPHENIRAMINE MALEATE. [Concomitant]
     Active Substance: CHLORPHENIRAMINE MALEATE
     Dosage: 5 MILLIGRAM
     Route: 041
     Dates: start: 20200109
  4. CHLORPHENIRAMINE MALEATE. [Concomitant]
     Active Substance: CHLORPHENIRAMINE MALEATE
     Dosage: 5 MILLIGRAM
     Route: 041
     Dates: start: 20200112
  5. DILTIAZEM. [Concomitant]
     Active Substance: DILTIAZEM
     Indication: MYOCARDIAL ISCHAEMIA
     Dosage: 60 MILLIGRAM
     Route: 048
     Dates: start: 20190917
  6. SULFAMETHOXAZOLE [Concomitant]
     Active Substance: SULFAMETHOXAZOLE
     Indication: CATARACT
     Dosage: 1 DROPS
     Route: 047
     Dates: start: 20190819
  7. TRANEXAMIC ACID. [Concomitant]
     Active Substance: TRANEXAMIC ACID
     Indication: HAEMORRHAGE
     Dosage: 500 MILLIGRAM
     Route: 041
     Dates: start: 20200103, end: 20200114
  8. FLUOROMETHOLONE. [Concomitant]
     Active Substance: FLUOROMETHOLONE
     Indication: EYE INFLAMMATION
     Dosage: 2 DROPS
     Route: 047
     Dates: start: 20191126
  9. GLYCYRRHIZIN [Concomitant]
     Active Substance: GLYCYRRHIZIN
     Indication: ALANINE AMINOTRANSFERASE INCREASED
     Dosage: 100 MILLILITER
     Route: 041
     Dates: start: 20200109, end: 20200112
  10. AZACITIDINE. [Suspect]
     Active Substance: AZACITIDINE
     Dosage: 75 MILLIGRAM/SQ. METER
     Route: 058
     Dates: start: 202001
  11. NICORANDIL [Concomitant]
     Active Substance: NICORANDIL
     Indication: MYOCARDIAL ISCHAEMIA
     Dosage: 10 MILLIGRAM
     Route: 048
     Dates: start: 20190917
  12. TRANEXAMIC ACID. [Concomitant]
     Active Substance: TRANEXAMIC ACID
     Dosage: 250 MILLIGRAM
     Route: 041
     Dates: start: 20200114
  13. FUROSEMIDE. [Concomitant]
     Active Substance: FUROSEMIDE
     Indication: OEDEMA
     Dosage: 40 MILLIGRAM
     Route: 048
     Dates: start: 20190819
  14. CHLORPHENIRAMINE MALEATE. [Concomitant]
     Active Substance: CHLORPHENIRAMINE MALEATE
     Indication: ADVERSE DRUG REACTION
     Dosage: 5 MILLIGRAM
     Route: 041
     Dates: start: 20200104
  15. HYDROCORTISONE. [Concomitant]
     Active Substance: HYDROCORTISONE
     Indication: HYPERSENSITIVITY
     Dosage: 100 MILLIGRAM
     Route: 041
     Dates: start: 20200109
  16. DIMETHICONE. [Concomitant]
     Active Substance: DIMETHICONE
     Indication: ABDOMINAL DISTENSION
     Dosage: 80 MILLIGRAM
     Route: 048
     Dates: start: 20200103, end: 20200114
  17. ALBUMIN 25% [Concomitant]
     Active Substance: ALBUMIN HUMAN
     Indication: DECREASED APPETITE
     Dosage: 50 MILLILITER
     Route: 041
     Dates: start: 20200117
  18. BETHANECHOL [Concomitant]
     Active Substance: BETHANECHOL
     Indication: BENIGN PROSTATIC HYPERPLASIA
     Dosage: 75 MILLIGRAM
     Route: 048
     Dates: start: 20191028
  19. FENTANYL. [Concomitant]
     Active Substance: FENTANYL
     Indication: GINGIVAL PAIN
     Route: 061
     Dates: start: 20190806
  20. SULFAMETHOXAZOLE [Concomitant]
     Active Substance: SULFAMETHOXAZOLE
     Dosage: 2 DROPS
     Route: 047
     Dates: start: 20191126
  21. BISACODYL. [Concomitant]
     Active Substance: BISACODYL
     Indication: CONSTIPATION
     Dosage: 20 MILLIGRAM
     Route: 054
     Dates: start: 20200106
  22. THEOPHYLLINE [Concomitant]
     Active Substance: THEOPHYLLINE ANHYDROUS
     Indication: PULMONARY FIBROSIS
     Dosage: 125 MILLIGRAM
     Route: 048
     Dates: start: 20190917
  23. POTASSIUM CHLORIDE IN 0.9% NACL [Concomitant]
     Indication: HYPOKALAEMIA
     Dosage: 500 MILLILITER
     Route: 041
     Dates: start: 20200106, end: 20200113
  24. FUROSEMIDE. [Concomitant]
     Active Substance: FUROSEMIDE
     Indication: RESPIRATORY FAILURE
     Dosage: 20 MILLIGRAM
     Route: 041
     Dates: start: 20200123, end: 20200123
  25. XYLMOL [Concomitant]
     Indication: HAEMORRHOIDS
     Route: 054
     Dates: start: 20191231, end: 20200107
  26. PRACINOSTAT [Concomitant]
     Active Substance: PRACINOSTAT
     Indication: ACUTE MYELOID LEUKAEMIA
     Dosage: 60 MILLIGRAM
     Route: 048
     Dates: start: 20190604, end: 20200116
  27. PRACINOSTAT [Concomitant]
     Active Substance: PRACINOSTAT
     Dosage: 60 MILLIGRAM
     Route: 048
     Dates: start: 202001
  28. CHLORPHENIRAMINE MALEATE. [Concomitant]
     Active Substance: CHLORPHENIRAMINE MALEATE
     Indication: HYPERSENSITIVITY
     Dosage: 5 MILLIGRAM
     Route: 041
     Dates: start: 20200106
  29. PETHIDINE [Concomitant]
     Active Substance: MEPERIDINE
     Indication: ADVERSE DRUG REACTION
     Dosage: 25 MILLIGRAM
     Route: 041
     Dates: start: 20200109
  30. HYDROCORTISONE. [Concomitant]
     Active Substance: HYDROCORTISONE
     Dosage: 100 MILLIGRAM
     Route: 041
     Dates: start: 20200112
  31. FENTANYL. [Concomitant]
     Active Substance: FENTANYL
     Indication: BONE PAIN
  32. SENNOSIDES. [Concomitant]
     Active Substance: SENNOSIDES
     Indication: CONSTIPATION
     Dosage: 48 MILLIGRAM
     Route: 048
     Dates: start: 20190615
  33. POTASSIUM GLUCONATE [Concomitant]
     Active Substance: POTASSIUM GLUCONATE
     Indication: HYPOKALAEMIA
     Dosage: 1190 MILLIGRAM
     Route: 048
     Dates: start: 20200106, end: 20200108
  34. CHLORPHENIRAMINE MALEATE. [Concomitant]
     Active Substance: CHLORPHENIRAMINE MALEATE
     Dosage: 5 MILLIGRAM
     Route: 041
     Dates: start: 20200114

REACTIONS (3)
  - Decreased appetite [Not Recovered/Not Resolved]
  - Febrile neutropenia [Unknown]
  - Septic shock [Fatal]

NARRATIVE: CASE EVENT DATE: 20200103
